FAERS Safety Report 5023654-8 (Version None)
Quarter: 2006Q2

REPORT INFORMATION
  Report Type: 
  Country: None (occurrence: None)
  Receive Date: 20060606
  Receipt Date: 20060522
  Transmission Date: 20061013
  Serious: Yes (Disabling, Other)
  Sender: FDA-Public Use
  Company Number: HQWYE533727MAR06

PATIENT
  Age: 52 Year
  Sex: Female
  Weight: 72.64 kg

DRUGS (2)
  1. PREMPRO [Suspect]
     Indication: HOT FLUSH
     Dosage: 1 TABLET DAILY AT AN UNSPECIFIED DOSAGE, ORAL
     Route: 048
     Dates: start: 19960101, end: 19981201
  2. PREMPRO [Suspect]
     Indication: MENOPAUSAL SYMPTOMS
     Dosage: 1 TABLET DAILY AT AN UNSPECIFIED DOSAGE, ORAL
     Route: 048
     Dates: start: 19960101, end: 19981201

REACTIONS (8)
  - BREAST CANCER METASTATIC [None]
  - BREAST CANCER RECURRENT [None]
  - BREAST CANCER STAGE I [None]
  - METASTASES TO CENTRAL NERVOUS SYSTEM [None]
  - METASTASES TO CHEST WALL [None]
  - METASTASES TO PLEURA [None]
  - METASTASES TO SKIN [None]
  - METASTASES TO THE MEDIASTINUM [None]
